FAERS Safety Report 6902099-7 (Version None)
Quarter: 2010Q3

REPORT INFORMATION
  Report Type: 
  Country: None (occurrence: None)
  Receive Date: 20100803
  Receipt Date: 20080416
  Transmission Date: 20110219
  Serious: No
  Sender: FDA-Public Use
  Company Number: US-PFIZER INC-2008012606

PATIENT
  Sex: Female

DRUGS (1)
  1. LYRICA [Suspect]
     Indication: POST HERPETIC NEURALGIA

REACTIONS (6)
  - ALOPECIA [None]
  - DRUG INEFFECTIVE [None]
  - DRY MOUTH [None]
  - NAIL DISORDER [None]
  - ONYCHOCLASIS [None]
  - WEIGHT INCREASED [None]
